FAERS Safety Report 7897138-3 (Version None)
Quarter: 2011Q4

REPORT INFORMATION
  Report Type: 
  Country: None (occurrence: None)
  Receive Date: 20111107
  Receipt Date: 20111101
  Transmission Date: 20120403
  Serious: Yes (Hospitalization)
  Sender: FDA-Public Use
  Company Number: US-SANOFI-AVENTIS-2011SA071808

PATIENT

DRUGS (1)
  1. LANTUS [Suspect]
     Route: 065

REACTIONS (1)
  - PANCREATITIS [None]
